FAERS Safety Report 20976396 (Version 3)
Quarter: 2022Q3

REPORT INFORMATION
  Report Type: Spontaneous
  Country: GB (occurrence: GB)
  Receive Date: 20220617
  Receipt Date: 20220728
  Transmission Date: 20221026
  Serious: Yes (Hospitalization, Other)
  Sender: FDA-Public Use
  Company Number: GB-VERTEX PHARMACEUTICALS-2022-006236

PATIENT
  Age: 26 Year
  Sex: Female
  Weight: 64 kg

DRUGS (6)
  1. ELEXACAFTOR\IVACAFTOR\TEZACAFTOR [Suspect]
     Active Substance: ELEXACAFTOR\IVACAFTOR\TEZACAFTOR
     Indication: Cystic fibrosis
     Dosage: FULL DOSE
     Route: 048
     Dates: start: 20210225, end: 202109
  2. ELEXACAFTOR\IVACAFTOR\TEZACAFTOR [Suspect]
     Active Substance: ELEXACAFTOR\IVACAFTOR\TEZACAFTOR
     Dosage: FREQ UNK
     Route: 048
     Dates: start: 20220316
  3. GLICLAZIDE [Concomitant]
     Active Substance: GLICLAZIDE
     Indication: Diabetes mellitus
     Dosage: UNK
     Dates: start: 2022
  4. URSODIOL [Concomitant]
     Active Substance: URSODIOL
     Indication: Cystic fibrosis hepatic disease
     Dosage: 500 MILLIGRAM, BID
     Dates: start: 2010
  5. PARAVIT CF [Concomitant]
     Indication: Hypovitaminosis
     Dosage: UNK
     Dates: start: 2010
  6. OMEPRAZOLE [Concomitant]
     Active Substance: OMEPRAZOLE
     Dosage: 30 MILLIGRAM
     Route: 048
     Dates: start: 2015

REACTIONS (9)
  - Exposure during pregnancy [Unknown]
  - Pulmonary embolism [Not Recovered/Not Resolved]
  - Infective pulmonary exacerbation of cystic fibrosis [Recovered/Resolved]
  - Spontaneous rupture of membranes [Recovered/Resolved]
  - Lower respiratory tract infection [Recovered/Resolved]
  - Premature labour [Recovered/Resolved]
  - Haemophilus infection [Recovered/Resolved]
  - Staphylococcus test positive [Recovered/Resolved]
  - C-reactive protein increased [Recovered/Resolved]

NARRATIVE: CASE EVENT DATE: 20210901
